FAERS Safety Report 15298366 (Version 5)
Quarter: 2019Q1

REPORT INFORMATION
  Report Type: Report from Study
  Country: US (occurrence: US)
  Receive Date: 20180820
  Receipt Date: 20190329
  Transmission Date: 20190417
  Serious: Yes (Death, Hospitalization, Disabling, Other)
  Sender: FDA-Public Use
  Company Number: PHEH2018US034139

PATIENT
  Age: 50 Year
  Sex: Male
  Weight: 99.8 kg

DRUGS (6)
  1. MYFORTIC [Suspect]
     Active Substance: MYCOPHENOLATE SODIUM
     Indication: PROPHYLAXIS AGAINST TRANSPLANT REJECTION
     Dosage: 300 MG, BID
     Route: 048
     Dates: start: 20180718, end: 20180901
  2. MYFORTIC [Suspect]
     Active Substance: MYCOPHENOLATE SODIUM
     Dosage: 1 DF, Q12H
     Route: 048
  3. MYFORTIC [Suspect]
     Active Substance: MYCOPHENOLATE SODIUM
     Dosage: 180 MG, BID
     Route: 048
     Dates: start: 20180902, end: 20190202
  4. TACROLIMUS. [Suspect]
     Active Substance: TACROLIMUS
     Indication: PROPHYLAXIS AGAINST TRANSPLANT REJECTION
     Dosage: UNK (VARIABLE)
     Route: 048
     Dates: start: 20180509, end: 20180516
  5. CICLOSPORIN [Suspect]
     Active Substance: CYCLOSPORINE
     Indication: PROPHYLAXIS AGAINST TRANSPLANT REJECTION
     Dosage: UNK
     Route: 048
     Dates: start: 20180517
  6. MYFORTIC [Suspect]
     Active Substance: MYCOPHENOLATE SODIUM
     Indication: LIVER TRANSPLANT
     Dosage: 720 MG, BID
     Route: 048
     Dates: start: 20180509, end: 20180717

REACTIONS (15)
  - Fatigue [Fatal]
  - Neutropenia [Unknown]
  - Nausea [Fatal]
  - Pleural effusion [Unknown]
  - Product use in unapproved indication [Unknown]
  - Neuroendocrine carcinoma metastatic [Fatal]
  - Pancreatic atrophy [Unknown]
  - Abdominal neoplasm [Unknown]
  - Hypophagia [Fatal]
  - Abdominal distension [Fatal]
  - Granuloma [Unknown]
  - Eructation [Fatal]
  - Gastric cancer [Unknown]
  - Pancreatic carcinoma [Unknown]
  - Malignant ascites [Unknown]

NARRATIVE: CASE EVENT DATE: 201807
